FAERS Safety Report 7323669-0 (Version None)
Quarter: 2011Q1

REPORT INFORMATION
  Report Type: 
  Country: None (occurrence: None)
  Receive Date: 20110301
  Receipt Date: 20110218
  Transmission Date: 20110831
  Serious: Yes (Death)
  Sender: FDA-Public Use
  Company Number: ZA-ABBOTT-11R-143-0705977-00

PATIENT
  Weight: 1.2 kg

DRUGS (4)
  1. SURVANTA [Suspect]
     Indication: PRODUCT USED FOR UNKNOWN INDICATION
     Dosage: 5 ML VIA ENDOTRACHEAL TUBE
     Dates: start: 20101120, end: 20101120
  2. CEFOTAXIME [Concomitant]
     Indication: PRODUCT USED FOR UNKNOWN INDICATION
     Route: 042
  3. GENTAMICIN [Concomitant]
     Indication: PRODUCT USED FOR UNKNOWN INDICATION
     Route: 042
  4. PENICILLIN G [Concomitant]
     Indication: PRODUCT USED FOR UNKNOWN INDICATION
     Dosage: 12 HOURLY
     Route: 042

REACTIONS (7)
  - BRADYCARDIA [None]
  - CHEST DISCOMFORT [None]
  - PALLOR [None]
  - PULMONARY HAEMORRHAGE [None]
  - CYANOSIS [None]
  - ABDOMINAL DISCOMFORT [None]
  - RESPIRATORY FAILURE [None]
